FAERS Safety Report 13645360 (Version 3)
Quarter: 2017Q3

REPORT INFORMATION
  Report Type: Report from Study
  Country: None (occurrence: KR)
  Receive Date: 20170612
  Receipt Date: 20170712
  Transmission Date: 20171127
  Serious: Yes (Hospitalization, Other)
  Sender: FDA-Public Use
  Company Number: KR-ABBVIE-17K-090-2000834-00

PATIENT
  Sex: Female

DRUGS (8)
  1. PENTASA [Concomitant]
     Active Substance: MESALAMINE
     Indication: PRODUCT USED FOR UNKNOWN INDICATION
  2. ENTOCORT [Concomitant]
     Active Substance: BUDESONIDE
     Indication: COLITIS ULCERATIVE
  3. HUMIRA [Suspect]
     Active Substance: ADALIMUMAB
     Route: 058
  4. ASACOL [Concomitant]
     Active Substance: MESALAMINE
     Indication: COLITIS ULCERATIVE
  5. ASACOL [Concomitant]
     Active Substance: MESALAMINE
  6. MEZAVANT [Concomitant]
     Active Substance: MESALAMINE
     Indication: COLITIS ULCERATIVE
     Dosage: AFTER MORNING MEAL
  7. HUMIRA [Suspect]
     Active Substance: ADALIMUMAB
     Indication: COLITIS ULCERATIVE
     Route: 058
  8. SARIDON [Concomitant]
     Indication: HEADACHE

REACTIONS (8)
  - Colitis ulcerative [Unknown]
  - Depression postoperative [Unknown]
  - Intracranial aneurysm [Unknown]
  - Adverse drug reaction [Unknown]
  - Haematochezia [Recovered/Resolved]
  - Constipation [Unknown]
  - Pancreatitis [Unknown]
  - Abnormal faeces [Recovering/Resolving]

NARRATIVE: CASE EVENT DATE: 2013
